FAERS Safety Report 23978924 (Version 2)
Quarter: 2024Q3

REPORT INFORMATION
  Report Type: Spontaneous
  Country: US (occurrence: US)
  Receive Date: 20240615
  Receipt Date: 20240705
  Transmission Date: 20241017
  Serious: No
  Sender: AMGEN
  Company Number: US-AMGEN-USASP2024116504

PATIENT
  Age: 82 Year
  Sex: Female

DRUGS (3)
  1. REPATHA [Suspect]
     Active Substance: EVOLOCUMAB
     Indication: Blood cholesterol increased
     Dosage: UNK UNK, QMO
     Route: 065
  2. REPATHA [Suspect]
     Active Substance: EVOLOCUMAB
     Dosage: 140 MILLIGRAM/ML, Q2WK
     Route: 065
  3. REPATHA [Suspect]
     Active Substance: EVOLOCUMAB
     Dosage: UNK
     Route: 065

REACTIONS (10)
  - Device difficult to use [Unknown]
  - Incorrect disposal of product [Not Recovered/Not Resolved]
  - Hypersomnia [Unknown]
  - Asthenia [Unknown]
  - Balance disorder [Recovered/Resolved]
  - Dyspnoea [Unknown]
  - Gait disturbance [Unknown]
  - Injection site bruising [Not Recovered/Not Resolved]
  - Dizziness [Unknown]
  - Injection site pain [Unknown]

NARRATIVE: CASE EVENT DATE: 20240101
